FAERS Safety Report 17443561 (Version 1)
Quarter: 2020Q1

REPORT INFORMATION
  Report Type: Spontaneous
  Country: US (occurrence: US)
  Receive Date: 20200220
  Receipt Date: 20200220
  Transmission Date: 20200409
  Serious: Yes (Other)
  Sender: FDA-Public Use
  Company Number: None

PATIENT
  Age: 18 Year
  Sex: Male
  Weight: 54 kg

DRUGS (3)
  1. MIRTAZAPINE 15MG DAILY [Concomitant]
  2. DIVALPROEX [Suspect]
     Active Substance: DIVALPROEX SODIUM
     Indication: AGGRESSION
     Route: 048
  3. LEVOTHYROXINE 125 MCG DAILY [Concomitant]

REACTIONS (3)
  - Thrombocytopenia [None]
  - Neutropenia [None]
  - Pancytopenia [None]

NARRATIVE: CASE EVENT DATE: 20200205
